FAERS Safety Report 8881208 (Version 1)
Quarter: 2012Q4

REPORT INFORMATION
  Report Type: Report from Study
  Country: CA (occurrence: CA)
  Receive Date: 20121031
  Receipt Date: 20121031
  Transmission Date: 20130627
  Serious: Yes (Other)
  Sender: FDA-Public Use
  Company Number: CA-ROCHE-1149845

PATIENT
  Sex: Female
  Weight: 72.64 kg

DRUGS (4)
  1. RITUXIMAB [Suspect]
     Indication: RHEUMATOID ARTHRITIS
     Route: 042
     Dates: start: 20120511
  2. IBUPROFEN [Suspect]
     Indication: RHEUMATOID ARTHRITIS
     Route: 065
  3. CELEBREX [Concomitant]
  4. OMEPRAZOLE [Concomitant]

REACTIONS (2)
  - Red blood cell sedimentation rate increased [Not Recovered/Not Resolved]
  - Abdominal pain upper [Recovering/Resolving]
